FAERS Safety Report 8429778 (Version 5)
Quarter: 2012Q4

REPORT INFORMATION
  Report Type: Spontaneous
  Country: AT (occurrence: None)
  Receive Date: 20120202
  Receipt Date: 20120823
  Transmission Date: 20130627
  Serious: Yes (Life-Threatening)
  Sender: FDA-Public Use
  Company Number: 2012030908

PATIENT
  Age: 43 Year
  Sex: Male

DRUGS (10)
  1. PRIVIGEN [Suspect]
     Indication: CHRONIC INFLAMMATORY DEMYELINATING POLYRADICULONEUROPATHY
     Route: 042
     Dates: start: 201111
  2. PRIVIGEN [Suspect]
     Indication: CHRONIC INFLAMMATORY DEMYELINATING POLYRADICULONEUROPATHY
     Dosage: day 4: 20 g x1/day, 20 g QD, NOV-2011: day 1-3: 20g x2/day; day 4: 20 g x1/day
     Route: 042
  3. PRIVIGEN [Suspect]
     Indication: CHRONIC INFLAMMATORY DEMYELINATING POLYRADICULONEUROPATHY
  4. PRIVIGEN [Suspect]
     Indication: CHRONIC INFLAMMATORY DEMYELINATING POLYRADICULONEUROPATHY
  5. PRIVIGEN [Suspect]
     Indication: CHRONIC INFLAMMATORY DEMYELINATING POLYRADICULONEUROPATHY
  6. PRIVIGEN [Suspect]
     Indication: CHRONIC INFLAMMATORY DEMYELINATING POLYRADICULONEUROPATHY
  7. NEXIUM [Concomitant]
  8. LYRICA [Concomitant]
  9. AZATHIOPRINE [Concomitant]
  10. TRAZODONE HYDROCHLORIDE [Concomitant]

REACTIONS (6)
  - Pulmonary embolism [None]
  - Dyspnoea [None]
  - Pain [None]
  - Off label use [None]
  - Cough [None]
  - Off label use [None]
